FAERS Safety Report 24573600 (Version 1)
Quarter: 2024Q4

REPORT INFORMATION
  Report Type: Spontaneous
  Country: IT (occurrence: IT)
  Receive Date: 20241103
  Receipt Date: 20241103
  Transmission Date: 20250114
  Serious: Yes (Death)
  Sender: AMGEN
  Company Number: IT-AMGEN-ITASP2024203786

PATIENT
  Age: 71 Year
  Sex: Male
  Weight: 80 kg

DRUGS (10)
  1. BEVACIZUMAB [Suspect]
     Active Substance: BEVACIZUMAB
     Indication: Hepatocellular carcinoma
     Dosage: 1200 MILLIGRAM, Q3WK (1200 MILLIGRAM, Q3WK (DOSE LAST STUDY DRUG ADMIN PRIOR AE IS 1200 MGSTART DATE
     Route: 040
     Dates: start: 20240417
  2. ATEZOLIZUMAB [Suspect]
     Active Substance: ATEZOLIZUMAB
     Indication: Hepatocellular carcinoma
     Dosage: 1200 MILLIGRAM, Q3WK (DOSE LAST STUDY DRUG ADMIN PRIOR AE IS 1200 MG)
     Route: 040
     Dates: start: 20240417
  3. TIRAGOLUMAB [Suspect]
     Active Substance: TIRAGOLUMAB
     Indication: Hepatocellular carcinoma
     Dosage: UNK UNK, Q3WK
     Route: 040
     Dates: start: 20240417
  4. PROCTOLYN [Concomitant]
     Indication: Haemorrhoidal haemorrhage
     Dosage: UNK (EVERY 0.5 DAY)
     Route: 054
     Dates: start: 20240407, end: 20240409
  5. HESPERIDIN [Concomitant]
     Active Substance: HESPERIDIN
     Indication: Haemorrhoidal haemorrhage
     Dosage: 50 MILLIGRAM (EVERY 0.5 DAY)
     Route: 048
     Dates: start: 20240407, end: 20240409
  6. CARVEDILOL [Concomitant]
     Active Substance: CARVEDILOL
     Indication: Prophylaxis
     Dosage: 6.25 MILLIGRAM, QD
     Route: 048
     Dates: start: 20240312
  7. CARVEDILOL [Concomitant]
     Active Substance: CARVEDILOL
     Dosage: 6.25 MILLIGRAM, QD
     Route: 065
     Dates: start: 20240321
  8. HERBALS\SAW PALMETTO [Concomitant]
     Active Substance: HERBALS\SAW PALMETTO
     Indication: Benign prostatic hyperplasia
     Dosage: 320 MILLIGRAM, QD
     Route: 048
     Dates: start: 2020, end: 20240826
  9. ESOXX ONE [Concomitant]
     Indication: Gastrooesophageal reflux disease
     Dosage: 1 DOSAGE FORM (MEDICATION DOSE: 1 GRAIN)
     Route: 048
     Dates: start: 20240220
  10. DIOSMIN [Concomitant]
     Active Substance: DIOSMIN
     Indication: Haemorrhoidal haemorrhage
     Dosage: 450 MILLIGRAM (EVERY 0.5 DAY)
     Route: 048
     Dates: start: 20240407, end: 20240409

REACTIONS (3)
  - Death [Fatal]
  - Off label use [Unknown]
  - Hypertension [Recovered/Resolved]

NARRATIVE: CASE EVENT DATE: 20240508
